FAERS Safety Report 19647325 (Version 1)
Quarter: 2021Q3

REPORT INFORMATION
  Report Type: Spontaneous
  Country: US (occurrence: US)
  Receive Date: 20210802
  Receipt Date: 20210802
  Transmission Date: 20211014
  Serious: No
  Sender: FDA-Public Use
  Company Number: US-ASTRAZENECA-2021A616059

PATIENT
  Age: 6750 Day
  Sex: Female

DRUGS (1)
  1. FASENRA [Suspect]
     Active Substance: BENRALIZUMAB
     Indication: ASTHMA
     Dosage: 30MG ONCE A MONTH FOR THE FIRST 3 DOSES AND EVERY 3 MONTH THEREAFTER SINCE 07?MAY?2021
     Route: 058
     Dates: start: 20210507

REACTIONS (4)
  - Injection site pain [Unknown]
  - Product administration interrupted [Unknown]
  - Needle issue [Unknown]
  - Panic attack [Unknown]

NARRATIVE: CASE EVENT DATE: 20210707
